FAERS Safety Report 23466010 (Version 2)
Quarter: 2024Q1

REPORT INFORMATION
  Report Type: Report from Study
  Country: US (occurrence: US)
  Receive Date: 20240201
  Receipt Date: 20240209
  Transmission Date: 20240409
  Serious: Yes (Other)
  Sender: FDA-Public Use
  Company Number: US-JAZZ PHARMACEUTICALS-2024-US-001731

PATIENT
  Age: 11 Year
  Sex: Female
  Weight: 30.7 kg

DRUGS (15)
  1. EPIDIOLEX [Suspect]
     Active Substance: CANNABIDIOL
     Indication: Product used for unknown indication
     Dosage: 4 MILLILITER, BID
     Route: 048
     Dates: start: 2020
  2. EPIDIOLEX [Suspect]
     Active Substance: CANNABIDIOL
     Dosage: UNK
  3. DEPAKOTE [Concomitant]
     Active Substance: DIVALPROEX SODIUM
     Indication: Product used for unknown indication
  4. DIETARY SUPPLEMENT [Concomitant]
     Active Substance: DIETARY SUPPLEMENT
     Indication: Product used for unknown indication
  5. ZINC [Concomitant]
     Active Substance: PYRITHIONE ZINC\ZINC\ZINC CHLORIDE
     Indication: Product used for unknown indication
  6. PROBIOTICS ONE DAILY SUPPORT [Concomitant]
     Indication: Product used for unknown indication
  7. KEPPRA EBB [Concomitant]
     Indication: Product used for unknown indication
  8. MAGNESIUM [Concomitant]
     Active Substance: MAGNESIUM
     Indication: Product used for unknown indication
  9. DIASTAT ACUDIAL [Concomitant]
     Active Substance: DIAZEPAM
     Indication: Product used for unknown indication
  10. ONFI [Concomitant]
     Active Substance: CLOBAZAM
     Indication: Product used for unknown indication
  11. VALTOCO [Concomitant]
     Active Substance: DIAZEPAM
     Indication: Product used for unknown indication
  12. VALIUM [Concomitant]
     Active Substance: DIAZEPAM
     Indication: Product used for unknown indication
  13. HERBALS\TURMERIC [Concomitant]
     Active Substance: HERBALS\TURMERIC
     Indication: Product used for unknown indication
  14. FINTEPLA [Concomitant]
     Active Substance: FENFLURAMINE
     Indication: Product used for unknown indication
  15. NESTLE SOOTHERS [Concomitant]
     Indication: Product used for unknown indication

REACTIONS (3)
  - Spinal fusion surgery [Unknown]
  - Diarrhoea [Recovered/Resolved]
  - Eating disorder [Unknown]

NARRATIVE: CASE EVENT DATE: 20240126
